FAERS Safety Report 4610451-8 (Version None)
Quarter: 2005Q1

REPORT INFORMATION
  Report Type: 
  Country: None (occurrence: None)
  Receive Date: 20050314
  Receipt Date: 20050224
  Transmission Date: 20050727
  Serious: Yes (Hospitalization)
  Sender: FDA-Public Use
  Company Number: 2005PL000011

PATIENT
  Age: 24 Year
  Sex: Male
  Weight: 77.1115 kg

DRUGS (3)
  1. IMURAN [Suspect]
     Indication: CROHN'S DISEASE
     Dosage: ORAL
     Route: 048
  2. ASACOL [Concomitant]
  3. PREDNISONE [Concomitant]

REACTIONS (4)
  - ARTHRALGIA [None]
  - BACK PAIN [None]
  - HEADACHE [None]
  - PYREXIA [None]
